FAERS Safety Report 22273958 (Version 1)
Quarter: 2023Q2

REPORT INFORMATION
  Report Type: Spontaneous
  Country: TR (occurrence: TR)
  Receive Date: 20230502
  Receipt Date: 20230502
  Transmission Date: 20230721
  Serious: Yes (Life-Threatening, Other)
  Sender: FDA-Public Use
  Company Number: TR-PFIZER INC-PV202300074395

PATIENT
  Age: 55 Year
  Sex: Male

DRUGS (1)
  1. LORLATINIB [Suspect]
     Active Substance: LORLATINIB
     Indication: Lung adenocarcinoma stage III
     Dosage: 100 MG, DAILY

REACTIONS (3)
  - Ocular toxicity [Recovered/Resolved]
  - Optic neuropathy [Recovered/Resolved]
  - Blindness [Recovered/Resolved]
